FAERS Safety Report 23819583 (Version 1)
Quarter: 2024Q2

REPORT INFORMATION
  Report Type: Spontaneous
  Country: RU (occurrence: RU)
  Receive Date: 20240506
  Receipt Date: 20240506
  Transmission Date: 20240716
  Serious: Yes (Life-Threatening, Hospitalization, Other)
  Sender: FDA-Public Use
  Company Number: RU-SA-SAC20240501001956

PATIENT
  Age: 32 Year
  Sex: Female
  Weight: 59 kg

DRUGS (2)
  1. APIDRA SOLOSTAR [Suspect]
     Active Substance: INSULIN GLULISINE
     Indication: Type 1 diabetes mellitus
     Route: 058
     Dates: start: 20240101, end: 20240112
  2. NOVORAPID [Concomitant]
     Active Substance: INSULIN ASPART
     Dosage: UNK
     Route: 058
     Dates: start: 20240301

REACTIONS (7)
  - Polyuria [Recovered/Resolved]
  - Polydipsia [Recovered/Resolved]
  - Nausea [Recovered/Resolved]
  - Ketoacidosis [Recovered/Resolved]
  - Dry mouth [Recovered/Resolved]
  - Asthenia [Unknown]
  - Thirst [Unknown]

NARRATIVE: CASE EVENT DATE: 20240106
